FAERS Safety Report 20114260 (Version 5)
Quarter: 2022Q3

REPORT INFORMATION
  Report Type: Report from Study
  Country: US (occurrence: US)
  Receive Date: 20211125
  Receipt Date: 20220715
  Transmission Date: 20221026
  Serious: Yes (Other)
  Sender: FDA-Public Use
  Company Number: US-NOVARTISTESTPH-NVSC2021US270593

PATIENT
  Sex: Male

DRUGS (1)
  1. ENTRESTO [Suspect]
     Active Substance: SACUBITRIL\VALSARTAN
     Indication: Product used for unknown indication
     Dosage: 1 DOSAGE FORM (97/103M FOR AROUND 4 YEARS)
     Route: 065

REACTIONS (6)
  - Renal impairment [Unknown]
  - Hypoacusis [Unknown]
  - Fluid retention [Unknown]
  - Renal disorder [Unknown]
  - Fatigue [Unknown]
  - Blood potassium increased [Unknown]
